FAERS Safety Report 10449383 (Version 1)
Quarter: 2014Q3

REPORT INFORMATION
  Report Type: Spontaneous
  Country: AU (occurrence: None)
  Receive Date: 20140910
  Receipt Date: 20140910
  Transmission Date: 20150326
  Serious: Yes (Hospitalization, Other)
  Sender: FDA-Public Use
  Company Number: 2014-20295

PATIENT
  Age: 96 Year
  Sex: Female

DRUGS (1)
  1. EYLEA [Suspect]
     Active Substance: AFLIBERCEPT
     Indication: AGE-RELATED MACULAR DEGENERATION
     Dosage: 2MG, OS Q. 1/12, INTRAOCULAR
     Route: 031
     Dates: start: 20140306

REACTIONS (3)
  - Hospitalisation [None]
  - Inappropriate schedule of drug administration [None]
  - Pain [None]
